FAERS Safety Report 13058989 (Version 1)
Quarter: 2016Q4

REPORT INFORMATION
  Report Type: Other
  Country: CA (occurrence: CA)
  Receive Date: 20161223
  Receipt Date: 20161223
  Transmission Date: 20170207
  Serious: Yes (Other)
  Sender: FDA-Public Use
  Company Number: CA-APOTEX-2016AP015770

PATIENT
  Age: 70 Year
  Sex: Female

DRUGS (5)
  1. APO-LEFLUNOMIDE [Suspect]
     Active Substance: LEFLUNOMIDE
     Indication: PRODUCT USED FOR UNKNOWN INDICATION
     Route: 065
  2. ENBREL [Suspect]
     Active Substance: ETANERCEPT
     Indication: RHEUMATOID ARTHRITIS
     Dosage: 50 MG, UNK
     Route: 065
  3. PLAQUENIL                          /00072602/ [Suspect]
     Active Substance: HYDROXYCHLOROQUINE DIPHOSPHATE
     Indication: PRODUCT USED FOR UNKNOWN INDICATION
     Dosage: UNK
     Route: 065
  4. CURCUMA ZANTHORRHIZA [Concomitant]
     Indication: ARTHRALGIA
     Route: 065
  5. SALAZOPYRIN [Suspect]
     Active Substance: SULFASALAZINE
     Indication: PRODUCT USED FOR UNKNOWN INDICATION
     Route: 065

REACTIONS (9)
  - Gastrointestinal bacterial infection [Unknown]
  - Gastrointestinal candidiasis [Unknown]
  - Retinal disorder [Unknown]
  - Candida infection [Unknown]
  - Crystal urine present [Unknown]
  - Hepatotoxicity [Unknown]
  - Renal disorder [Unknown]
  - Hypertension [Unknown]
  - Fungal skin infection [Unknown]
